FAERS Safety Report 25698021 (Version 1)
Quarter: 2025Q3

REPORT INFORMATION
  Report Type: Spontaneous
  Country: KR (occurrence: KR)
  Receive Date: 20250819
  Receipt Date: 20250819
  Transmission Date: 20251020
  Serious: Yes (Hospitalization, Other)
  Sender: AMGEN
  Company Number: KR-AMGEN-KORSP2025162415

PATIENT
  Age: 81 Year
  Sex: Male
  Weight: 67 kg

DRUGS (6)
  1. LUMAKRAS [Suspect]
     Active Substance: SOTORASIB
     Indication: Non-small cell lung cancer
     Dosage: 200 MILLIGRAM, QD (120 MG TABLETS)
     Route: 065
     Dates: start: 20240509, end: 20240621
  2. DUTASTERIDE [Concomitant]
     Active Substance: DUTASTERIDE
     Dates: start: 2019
  3. MIRABEGRON [Concomitant]
     Active Substance: MIRABEGRON
     Dates: start: 2019
  4. TAMSULOSIN HYDROCHLORIDE [Concomitant]
     Active Substance: TAMSULOSIN HYDROCHLORIDE
     Dates: start: 2019
  5. FENTANYL CITRATE [Concomitant]
     Active Substance: FENTANYL CITRATE
     Dates: start: 20240507
  6. SODIUM ALGINATE [Concomitant]
     Active Substance: SODIUM ALGINATE
     Dates: start: 20240531

REACTIONS (3)
  - Immune-mediated hepatitis [Unknown]
  - Aspartate aminotransferase increased [Recovered/Resolved]
  - Alanine aminotransferase increased [Recovered/Resolved]

NARRATIVE: CASE EVENT DATE: 20240621
